FAERS Safety Report 7869747-9 (Version None)
Quarter: 2011Q4

REPORT INFORMATION
  Report Type: 
  Country: None (occurrence: None)
  Receive Date: 20111028
  Receipt Date: 20110110
  Transmission Date: 20120403
  Serious: No
  Sender: FDA-Public Use
  Company Number: US-AMGEN-USASP2011001420

PATIENT
  Age: 31 Year
  Sex: Female

DRUGS (3)
  1. ENBREL [Suspect]
     Indication: PSORIATIC ARTHROPATHY
     Dosage: 50 MG, 2 TIMES/WK
     Dates: start: 20100610
  2. ENBREL [Suspect]
     Indication: PSORIASIS
  3. METHOTREXATE [Concomitant]
     Dosage: 1 MG, QWK
     Dates: start: 20110101

REACTIONS (9)
  - INJECTION SITE PRURITUS [None]
  - EXOSTOSIS [None]
  - MIGRAINE [None]
  - PSORIATIC ARTHROPATHY [None]
  - PROCEDURAL PAIN [None]
  - INJECTION SITE ERYTHEMA [None]
  - NASAL SEPTUM DEVIATION [None]
  - SINUS DISORDER [None]
  - INJECTION SITE SWELLING [None]
